FAERS Safety Report 9329618 (Version 1)
Quarter: 2013Q2

REPORT INFORMATION
  Report Type: Spontaneous
  Country: US (occurrence: US)
  Receive Date: 20130604
  Receipt Date: 20130604
  Transmission Date: 20140414
  Serious: Yes (Hospitalization)
  Sender: FDA-Public Use
  Company Number: US-SANOFI-AVENTIS-2012SA089095

PATIENT
  Age: 67 Year
  Sex: Male
  Weight: 86.18 kg

DRUGS (9)
  1. SOLOSTAR [Suspect]
     Indication: TYPE 2 DIABETES MELLITUS
     Dosage: DOSE:20 UNIT(S)
     Route: 058
     Dates: start: 20121017
  2. SOLOSTAR [Interacting]
     Indication: TYPE 2 DIABETES MELLITUS
     Dosage: DOSE:30 UNIT(S)
     Route: 058
     Dates: start: 201211
  3. LANTUS SOLOSTAR [Interacting]
     Indication: TYPE 2 DIABETES MELLITUS
     Dosage: DOSE:30 UNIT(S)
     Route: 058
     Dates: start: 201211
  4. LANTUS SOLOSTAR [Interacting]
     Indication: TYPE 2 DIABETES MELLITUS
     Dosage: DOSE:25 UNIT(S)
     Route: 058
     Dates: start: 20121017
  5. VACCINES [Interacting]
     Route: 065
     Dates: start: 2012, end: 2012
  6. HUMALOG [Concomitant]
     Route: 065
  7. METOPROLOL [Concomitant]
     Dosage: 1/2 IN THE MORNING AND 1/2 IN THE EVENING.
  8. LOVASTATIN [Concomitant]
     Dosage: ONE DAILY
  9. ENALAPRIL [Concomitant]
     Indication: HYPERTENSION
     Dosage: ONE DAILY

REACTIONS (2)
  - Blood glucose increased [Recovering/Resolving]
  - Drug interaction [Recovered/Resolved]
